FAERS Safety Report 24025890 (Version 1)
Quarter: 2024Q2

REPORT INFORMATION
  Report Type: Spontaneous
  Country: US (occurrence: US)
  Receive Date: 20240628
  Receipt Date: 20240628
  Transmission Date: 20240716
  Serious: No
  Sender: FDA-Public Use
  Company Number: US-ROCHE-3501557

PATIENT

DRUGS (2)
  1. ALECENSA [Suspect]
     Active Substance: ALECTINIB HYDROCHLORIDE
     Indication: Product used for unknown indication
     Dosage: BY MOUTH
     Route: 048
  2. LORLATINIB [Concomitant]
     Active Substance: LORLATINIB

REACTIONS (1)
  - Disease progression [Unknown]
